FAERS Safety Report 7956545-0 (Version None)
Quarter: 2011Q4

REPORT INFORMATION
  Report Type: 
  Country: None (occurrence: None)
  Receive Date: 20111205
  Receipt Date: 20111125
  Transmission Date: 20120403
  Serious: Yes (Other)
  Sender: FDA-Public Use
  Company Number: BR-PFIZER INC-2011289209

PATIENT
  Age: 39 Year
  Sex: Female
  Weight: 74 kg

DRUGS (8)
  1. MEDROXYPROGESTERONE ACETATE [Suspect]
     Indication: OVARIAN CYST
  2. MAREVAN ^NYCOMED^ [Concomitant]
     Indication: CARDIAC DISORDER
     Dosage: UNK
  3. MEDROXYPROGESTERONE ACETATE [Suspect]
     Indication: UTERINE ENLARGEMENT
     Dosage: 10 MG (ONE TABLET), 1X/DAY
     Route: 048
     Dates: start: 20110701
  4. LOSARTAN [Concomitant]
     Indication: CARDIAC DISORDER
     Dosage: UNK
  5. MEDROXYPROGESTERONE ACETATE [Suspect]
     Indication: UTERINE LEIOMYOMA
  6. BROMAZEPAM [Concomitant]
     Indication: INSOMNIA
     Dosage: UNK
  7. HYDROCHLOROTHIAZIDE [Concomitant]
     Indication: CARDIAC DISORDER
     Dosage: UNK
  8. PROPRANOLOL [Concomitant]
     Indication: CARDIAC DISORDER
     Dosage: UNK

REACTIONS (3)
  - VEIN DISORDER [None]
  - VEIN PAIN [None]
  - OEDEMA PERIPHERAL [None]
